FAERS Safety Report 5018683-4 (Version None)
Quarter: 2006Q2

REPORT INFORMATION
  Report Type: 
  Country: None (occurrence: None)
  Receive Date: 20060530
  Receipt Date: 20060323
  Transmission Date: 20061013
  Serious: Yes (Death)
  Sender: FDA-Public Use
  Company Number: 224918

PATIENT
  Age: 50 Year
  Sex: Male

DRUGS (13)
  1. RITUXAN [Suspect]
     Indication: NON-HODGKIN'S LYMPHOMA
     Dosage: 800 MG, 1/WEEK, INTRAVENOUS
     Route: 042
     Dates: start: 19981202, end: 19981222
  2. RITUXAN [Suspect]
     Indication: NON-HODGKIN'S LYMPHOMA
     Dosage: 800 MG, 1/WEEK, INTRAVENOUS
     Route: 042
     Dates: start: 19990729, end: 19990810
  3. RITUXAN [Suspect]
     Indication: NON-HODGKIN'S LYMPHOMA
     Dosage: 800 MG, 1/WEEK, INTRAVENOUS
     Route: 042
     Dates: start: 20000425, end: 20010712
  4. LORATADINE [Concomitant]
  5. SIMVASTATIN [Concomitant]
  6. TERAZOSIN HCL [Concomitant]
  7. NICOTINE GUM (NICOTINE POLACRILEX) [Concomitant]
  8. HYDROPHILIC OINTMENT (HYDROPHILIC OINTMENT) [Concomitant]
  9. ABSORBASE (EMOLLIENT NOS) [Concomitant]
  10. IBUPROFEN [Concomitant]
  11. NITROGLYCERIN [Concomitant]
  12. ACETAMINOPHEN [Concomitant]
  13. FLUNISOLIDE (FLUNISOLIDE) [Concomitant]

REACTIONS (3)
  - CARDIAC ARREST [None]
  - MYOCARDIAL INFARCTION [None]
  - STEM CELL TRANSPLANT [None]
